FAERS Safety Report 11038402 (Version 1)
Quarter: 2015Q2

REPORT INFORMATION
  Report Type: Spontaneous
  Country: US (occurrence: US)
  Receive Date: 20150416
  Receipt Date: 20150416
  Transmission Date: 20150821
  Serious: No
  Sender: FDA-Public Use
  Company Number: US-BAYER-2015-136600

PATIENT
  Age: 75 Year
  Sex: Female
  Weight: 52.6 kg

DRUGS (1)
  1. CLARITIN [Suspect]
     Active Substance: LORATADINE
     Indication: SEASONAL ALLERGY
     Dosage: 1 DF, QD
     Route: 048
     Dates: start: 20150409, end: 20150411

REACTIONS (2)
  - Drug ineffective [Unknown]
  - Expired product administered [None]

NARRATIVE: CASE EVENT DATE: 20150409
